FAERS Safety Report 20747806 (Version 1)
Quarter: 2022Q2

REPORT INFORMATION
  Report Type: Spontaneous
  Country: US (occurrence: US)
  Receive Date: 20220425
  Receipt Date: 20220425
  Transmission Date: 20220721
  Serious: No
  Sender: FDA-Public Use
  Company Number: US-LUNDBECK-DKLU3046779

PATIENT
  Age: 56 Year
  Sex: Female
  Weight: 50 kg

DRUGS (2)
  1. VYEPTI [Suspect]
     Active Substance: EPTINEZUMAB-JJMR
     Indication: Headache
     Route: 041
     Dates: start: 202202
  2. VYEPTI [Suspect]
     Active Substance: EPTINEZUMAB-JJMR
     Indication: Migraine

REACTIONS (13)
  - Nasopharyngitis [Not Recovered/Not Resolved]
  - Fluid retention [Not Recovered/Not Resolved]
  - Weight increased [Not Recovered/Not Resolved]
  - Arthralgia [Not Recovered/Not Resolved]
  - Flushing [Not Recovered/Not Resolved]
  - Hot flush [Unknown]
  - Erythema [Not Recovered/Not Resolved]
  - Pruritus [Not Recovered/Not Resolved]
  - Urticaria [Not Recovered/Not Resolved]
  - Alopecia [Unknown]
  - Muscular weakness [Not Recovered/Not Resolved]
  - Abdominal pain upper [Recovered/Resolved]
  - Migraine [Not Recovered/Not Resolved]
